FAERS Safety Report 24293085 (Version 2)
Quarter: 2025Q3

REPORT INFORMATION
  Report Type: Spontaneous
  Country: US (occurrence: US)
  Receive Date: 20240906
  Receipt Date: 20250905
  Transmission Date: 20251021
  Serious: No
  Sender: DOMPE FARMACEUTICI
  Company Number: US-FARMAPROD-202311-3462

PATIENT
  Sex: Female

DRUGS (21)
  1. OXERVATE [Suspect]
     Active Substance: CENEGERMIN-BKBJ
     Indication: Neurotrophic keratopathy
     Route: 047
     Dates: start: 20231116
  2. OXERVATE [Suspect]
     Active Substance: CENEGERMIN-BKBJ
     Route: 047
     Dates: start: 20241215
  3. OXERVATE [Suspect]
     Active Substance: CENEGERMIN-BKBJ
  4. OXERVATE [Suspect]
     Active Substance: CENEGERMIN-BKBJ
     Route: 047
     Dates: start: 20250224
  5. PEPCID [Concomitant]
     Active Substance: FAMOTIDINE
  6. PEPCID [Concomitant]
     Active Substance: FAMOTIDINE
  7. ASPIRIN [Concomitant]
     Active Substance: ASPIRIN
  8. VITAMIN C [Concomitant]
     Active Substance: ASCORBIC ACID
  9. VITAMIN D3 [Concomitant]
     Active Substance: CHOLECALCIFEROL
  10. MULTIVITAMIN GUMMIES [Concomitant]
  11. FAMOTIDINE [Concomitant]
     Active Substance: FAMOTIDINE
  12. HYDROCHLOROTHIAZIDE [Concomitant]
     Active Substance: HYDROCHLOROTHIAZIDE
  13. SYSTANE (HYPROMELLOSE 2910 (4000 MPA.S)) [Concomitant]
     Active Substance: HYPROMELLOSE 2910 (4000 MPA.S)
  14. AMLODIPINE BESYLATE [Concomitant]
     Active Substance: AMLODIPINE BESYLATE
  15. LISINOPRIL [Concomitant]
     Active Substance: LISINOPRIL
  16. TYLENOL [Concomitant]
     Active Substance: ACETAMINOPHEN
  17. BENZONATATE [Concomitant]
     Active Substance: BENZONATATE
  18. AMOXICILLIN-CLAVULANATE POTASS [Concomitant]
  19. POTASSIUM CHLORIDE [Concomitant]
     Active Substance: POTASSIUM CHLORIDE
  20. PAIN RELIEF NOS [Concomitant]
     Active Substance: UNSPECIFIED INGREDIENT
  21. LISINOPRIL AND HYDROCHLOROTHIAZIDE [Concomitant]
     Active Substance: HYDROCHLOROTHIAZIDE\LISINOPRIL

REACTIONS (9)
  - Dizziness [Not Recovered/Not Resolved]
  - Headache [Unknown]
  - Eye irritation [Unknown]
  - Eye pain [Not Recovered/Not Resolved]
  - Dry eye [Unknown]
  - Drug ineffective [Unknown]
  - Vision blurred [Not Recovered/Not Resolved]
  - Ocular discomfort [Not Recovered/Not Resolved]
  - Wrong technique in product usage process [Unknown]
